FAERS Safety Report 25215336 (Version 2)
Quarter: 2025Q2

REPORT INFORMATION
  Report Type: Spontaneous
  Country: US (occurrence: US)
  Receive Date: 20250418
  Receipt Date: 20250430
  Transmission Date: 20250717
  Serious: Yes (Death)
  Sender: JOHNSON AND JOHNSON
  Company Number: US-JNJFOC-20250423167

PATIENT
  Age: 45 Year
  Sex: Male

DRUGS (2)
  1. SIMPONI [Suspect]
     Active Substance: GOLIMUMAB
     Indication: Colitis ulcerative
  2. STELARA [Suspect]
     Active Substance: USTEKINUMAB
     Indication: Colitis ulcerative
     Route: 058

REACTIONS (3)
  - Plasmablastic lymphoma [Fatal]
  - Treatment failure [Unknown]
  - Therapeutic response decreased [Unknown]
